FAERS Safety Report 23078652 (Version 1)
Quarter: 2023Q4

REPORT INFORMATION
  Report Type: Spontaneous
  Country: US (occurrence: US)
  Receive Date: 20231018
  Receipt Date: 20231018
  Transmission Date: 20240110
  Serious: Yes (Other)
  Sender: FDA-Public Use
  Company Number: US-BAYER-2023A144414

PATIENT
  Age: 36 Year
  Sex: Female

DRUGS (4)
  1. ASPIRIN [Suspect]
     Active Substance: ASPIRIN
     Dosage: UNK
  2. HEPARIN [Suspect]
     Active Substance: HEPARIN SODIUM
  3. METOPROLOL [Concomitant]
     Active Substance: METOPROLOL
  4. PRASUGREL [Concomitant]
     Active Substance: PRASUGREL

REACTIONS (3)
  - Arterial intramural haematoma [Recovered/Resolved]
  - Acute myocardial infarction [Recovered/Resolved]
  - Labelled drug-drug interaction issue [None]
